FAERS Safety Report 15108591 (Version 5)
Quarter: 2018Q4

REPORT INFORMATION
  Report Type: Report from Study
  Country: None (occurrence: US)
  Receive Date: 20180705
  Receipt Date: 20181015
  Transmission Date: 20190204
  Serious: Yes (Other)
  Sender: FDA-Public Use
  Company Number: US-ABBVIE-18K-163-2405023-00

PATIENT
  Sex: Female

DRUGS (3)
  1. HUMIRA [Suspect]
     Active Substance: ADALIMUMAB
     Indication: HIDRADENITIS
     Dosage: MAINTENANCE DOSE; DAY 29
     Route: 058
     Dates: start: 20180728
  2. HUMIRA [Suspect]
     Active Substance: ADALIMUMAB
     Indication: CROHN^S DISEASE
     Dosage: DAY 15
     Route: 058
     Dates: start: 20180712, end: 20180712
  3. HUMIRA [Suspect]
     Active Substance: ADALIMUMAB
     Indication: COLITIS ULCERATIVE
     Dosage: DAY 1
     Route: 058
     Dates: start: 20180628, end: 20180628

REACTIONS (17)
  - Stenosis [Unknown]
  - Frequent bowel movements [Unknown]
  - Joint swelling [Unknown]
  - Arthralgia [Not Recovered/Not Resolved]
  - Pain in extremity [Unknown]
  - Diarrhoea [Recovering/Resolving]
  - Procedural pain [Unknown]
  - Haemorrhoids [Unknown]
  - Peripheral swelling [Unknown]
  - Injection site erythema [Unknown]
  - Eyelid thickening [Unknown]
  - Joint stiffness [Unknown]
  - Rash [Unknown]
  - Musculoskeletal stiffness [Unknown]
  - Injection site irritation [Unknown]
  - Nausea [Unknown]
  - Hypersensitivity [Unknown]

NARRATIVE: CASE EVENT DATE: 2018
